FAERS Safety Report 7505494-0 (Version None)
Quarter: 2011Q2

REPORT INFORMATION
  Report Type: 
  Country: None (occurrence: None)
  Receive Date: 20110518
  Receipt Date: 20110504
  Transmission Date: 20111010
  Serious: Yes (Death)
  Sender: FDA-Public Use
  Company Number: 2011096556

PATIENT
  Age: 72 Year
  Sex: Male

DRUGS (1)
  1. DALTEPARIN SODIUM [Suspect]
     Indication: LUNG NEOPLASM MALIGNANT

REACTIONS (3)
  - SMALL CELL LUNG CANCER STAGE UNSPECIFIED [None]
  - CARDIAC FAILURE [None]
  - ATRIAL FIBRILLATION [None]
